FAERS Safety Report 20683071 (Version 1)
Quarter: 2022Q2

REPORT INFORMATION
  Report Type: Report from Study
  Country: CZ (occurrence: CZ)
  Receive Date: 20220407
  Receipt Date: 20220407
  Transmission Date: 20220720
  Serious: Yes (Other)
  Sender: FDA-Public Use
  Company Number: CZ-TEVA-2022-CZ-2024755

PATIENT
  Age: 44 Year
  Sex: Female

DRUGS (1)
  1. COPAXONE [Suspect]
     Active Substance: GLATIRAMER ACETATE
     Indication: Relapsing-remitting multiple sclerosis
     Route: 058
     Dates: start: 20160209, end: 20210203

REACTIONS (3)
  - Multiple sclerosis relapse [Recovered/Resolved]
  - Hemihypoaesthesia [Recovered/Resolved]
  - Multiple sclerosis [Unknown]

NARRATIVE: CASE EVENT DATE: 20210201
